FAERS Safety Report 4836986-0 (Version None)
Quarter: 2005Q4

REPORT INFORMATION
  Report Type: 
  Country: None (occurrence: None)
  Receive Date: 20051121
  Receipt Date: 20051110
  Transmission Date: 20060501
  Serious: Yes (Other)
  Sender: FDA-Public Use
  Company Number: HQWYE493310NOV05

PATIENT

DRUGS (1)
  1. MYLOTARG [Suspect]
     Indication: ACUTE MYELOID LEUKAEMIA

REACTIONS (2)
  - BUDD-CHIARI SYNDROME [None]
  - HEPATIC VEIN THROMBOSIS [None]
